FAERS Safety Report 21111303 (Version 2)
Quarter: 2022Q3

REPORT INFORMATION
  Report Type: Report from Study
  Country: ES (occurrence: ES)
  Receive Date: 20220721
  Receipt Date: 20220808
  Transmission Date: 20221026
  Serious: Yes (Disabling)
  Sender: FDA-Public Use
  Company Number: ES-GLAXOSMITHKLINE-ES2022GSK108614

PATIENT

DRUGS (1)
  1. BELANTAMAB MAFODOTIN [Suspect]
     Active Substance: BELANTAMAB MAFODOTIN
     Indication: Plasma cell myeloma
     Dosage: 2.5 MG/KG, Z (EVERY 3 WEEKS)
     Route: 042
     Dates: start: 20210105

REACTIONS (1)
  - Corneal epithelial microcysts [Recovered/Resolved]

NARRATIVE: CASE EVENT DATE: 20220309
